FAERS Safety Report 18767025 (Version 1)
Quarter: 2021Q1

REPORT INFORMATION
  Report Type: Spontaneous
  Country: US (occurrence: US)
  Receive Date: 20210121
  Receipt Date: 20210121
  Transmission Date: 20210419
  Serious: No
  Sender: FDA-Public Use
  Company Number: US-DRREDDYS-USA/USA/20/0130681

PATIENT
  Age: 30 Year
  Sex: Male
  Weight: 117 kg

DRUGS (1)
  1. OMEPRAZOLE DELAYED RELEASE CAPSULES 20 MG [Suspect]
     Active Substance: OMEPRAZOLE
     Indication: GASTROOESOPHAGEAL REFLUX DISEASE
     Dosage: 1 CAPSULE DAILY
     Route: 048
     Dates: start: 20201223

REACTIONS (2)
  - Rash [Unknown]
  - Urticaria [Unknown]
